FAERS Safety Report 7092689-6 (Version None)
Quarter: 2010Q4

REPORT INFORMATION
  Report Type: 
  Country: None (occurrence: None)
  Receive Date: 20101108
  Receipt Date: 20101108
  Transmission Date: 20110411
  Serious: No
  Sender: FDA-Public Use
  Company Number: None

PATIENT
  Age: 6 Month
  Sex: Male
  Weight: 8.1647 kg

DRUGS (1)
  1. HYLAND'S TEETHING TABLETS HYLAND'S HOMEOPATHIC [Suspect]
     Indication: TEETHING
     Dosage: 2-3 FEW TIMES DAILY PO
     Route: 048
     Dates: start: 20100804, end: 20101106

REACTIONS (4)
  - CONSTIPATION [None]
  - LETHARGY [None]
  - MICTURITION DISORDER [None]
  - SOMNOLENCE [None]
